FAERS Safety Report 17418252 (Version 1)
Quarter: 2020Q1

REPORT INFORMATION
  Report Type: Report from Study
  Country: None (occurrence: US)
  Receive Date: 20200214
  Receipt Date: 20200214
  Transmission Date: 20200409
  Serious: Yes (Other)
  Sender: FDA-Public Use
  Company Number: US-ABBVIE-20K-163-3274305-00

PATIENT
  Sex: Male

DRUGS (2)
  1. VENCLEXTA [Suspect]
     Active Substance: VENETOCLAX
     Indication: CHRONIC LYMPHOCYTIC LEUKAEMIA (IN REMISSION)
     Dosage: WITH BREAKFAST
     Route: 048
     Dates: start: 20200117, end: 2020
  2. VENCLEXTA [Suspect]
     Active Substance: VENETOCLAX
     Dosage: WITH BREAKFAST
     Route: 048
     Dates: start: 2020

REACTIONS (7)
  - Hypersomnia [Unknown]
  - Nasal neoplasm [Unknown]
  - Dry mouth [Unknown]
  - Fall [Unknown]
  - Haemoglobin abnormal [Unknown]
  - Loss of personal independence in daily activities [Unknown]
  - Neoplasm [Unknown]

NARRATIVE: CASE EVENT DATE: 2020
